FAERS Safety Report 9812752 (Version 1)
Quarter: 2014Q1

REPORT INFORMATION
  Report Type: Spontaneous
  Country: US (occurrence: US)
  Receive Date: 20140113
  Receipt Date: 20140113
  Transmission Date: 20141002
  Serious: No
  Sender: FDA-Public Use
  Company Number: US-009507513-1401USA003734

PATIENT
  Age: 75 Year
  Sex: Male

DRUGS (1)
  1. FOSAMAX PLUS D [Suspect]
     Dosage: STRENGTH: 70MG/2800 IU, 70 MG, QW
     Route: 048
     Dates: start: 2008

REACTIONS (2)
  - Muscular weakness [Unknown]
  - Joint instability [Unknown]
